FAERS Safety Report 5468419-8 (Version None)
Quarter: 2007Q3

REPORT INFORMATION
  Report Type: 
  Country: None (occurrence: None)
  Receive Date: 20070921
  Receipt Date: 20070830
  Transmission Date: 20080115
  Serious: Yes (Death)
  Sender: FDA-Public Use
  Company Number: V-DE-2007-1330

PATIENT
  Age: 14 Year
  Sex: Female

DRUGS (3)
  1. THIOCTACID 600 HR (THIOCTIC ACID) (TABLETS) [Suspect]
     Indication: SUICIDE ATTEMPT
     Dosage: MAX. 60 G IN TOTAL, ORAL
     Route: 048
     Dates: start: 20070829, end: 20070829
  2. NORFENEFRINE (NORFENEFRINE) (TABLETS) [Suspect]
     Indication: SUICIDE ATTEMPT
     Dosage: ORAL
     Route: 048
     Dates: start: 20070829, end: 20070829
  3. ACETAMINOPHEN [Suspect]
     Indication: SUICIDE ATTEMPT
     Dates: start: 20070829, end: 20070829

REACTIONS (9)
  - CARDIAC FAILURE [None]
  - CONVULSION [None]
  - DISSEMINATED INTRAVASCULAR COAGULATION [None]
  - HEPATIC FAILURE [None]
  - INTENTIONAL OVERDOSE [None]
  - LACTIC ACIDOSIS [None]
  - MULTI-ORGAN FAILURE [None]
  - RENAL FAILURE [None]
  - RESPIRATORY FAILURE [None]
